FAERS Safety Report 12997609 (Version 1)
Quarter: 2016Q4

REPORT INFORMATION
  Report Type: Spontaneous
  Country: US (occurrence: US)
  Receive Date: 20161205
  Receipt Date: 20161205
  Transmission Date: 20170207
  Serious: Yes (Other)
  Sender: FDA-Public Use
  Company Number: US-CLINIGEN GROUP PLC/ CLINIGEN HEALTHCARE LTD-E2B_00002366

PATIENT
  Age: 52 Year
  Sex: Female

DRUGS (16)
  1. ETHYOL [Suspect]
     Active Substance: AMIFOSTINE
     Dosage: 700 MG/M2 QM  UNKNOWN
     Route: 042
     Dates: start: 20001206
  2. ETHYOL [Suspect]
     Active Substance: AMIFOSTINE
     Dosage: 300MG5/WEEK  UNKNOWN
     Route: 042
  3. RADIATION THERAPY [Concomitant]
     Active Substance: RADIATION THERAPY
     Dosage: UNKNOWN
     Route: 065
     Dates: start: 20001206
  4. BENADRYL [Concomitant]
     Active Substance: DIPHENHYDRAMINE HYDROCHLORIDE
     Dosage: 12.6 MG  UNKNOWN
     Route: 065
     Dates: start: 20001206
  5. ETHYOL [Suspect]
     Active Substance: AMIFOSTINE
     Dosage: 700-300 MG* 2 MONTH(S)
     Route: 042
     Dates: start: 20001206, end: 20010124
  6. 5-FU [Concomitant]
     Active Substance: FLUOROURACIL
     Dosage: UNKNOWN
     Route: 065
     Dates: start: 20001206
  7. CLONIDINE. [Concomitant]
     Active Substance: CLONIDINE
     Route: 065
  8. CISPLATIN. [Concomitant]
     Active Substance: CISPLATIN
     Dosage: UNKNOWN
     Route: 065
     Dates: start: 20001206
  9. ETHYOL [Suspect]
     Active Substance: AMIFOSTINE
     Dosage: 700 MG/M2 QM  UNKNOWN
     Route: 042
     Dates: start: 20001206
  10. ETHYOL [Suspect]
     Active Substance: AMIFOSTINE
     Dosage: 300MG5/WEEK  UNKNOWN
     Route: 042
  11. ETHYOL [Suspect]
     Active Substance: AMIFOSTINE
     Dosage: 300MG5/WEEK  UNKNOWN
     Route: 042
  12. ANZEMET (DOLASETRON MESYLATE) [Concomitant]
     Dosage: 100 MG  UNKNOWN
     Route: 065
     Dates: start: 20001206
  13. ETHYOL [Suspect]
     Active Substance: AMIFOSTINE
     Dosage: 700 MG/M2 QM  UNKNOWN
     Route: 042
     Dates: start: 20001206
  14. ETHYOL [Suspect]
     Active Substance: AMIFOSTINE
     Indication: ADVERSE DRUG REACTION
     Dosage: 700-300 MG* 2 MONTH(S)
     Route: 042
     Dates: start: 20001206, end: 20010124
  15. ETHYOL [Suspect]
     Active Substance: AMIFOSTINE
     Dosage: 700-300 MG* 2 MONTH(S)
     Route: 042
     Dates: start: 20001206, end: 20010124
  16. CAPTOPRIL. [Concomitant]
     Active Substance: CAPTOPRIL
     Route: 065

REACTIONS (10)
  - Headache [Unknown]
  - Hypoalbuminaemia [Unknown]
  - Muscular weakness [Unknown]
  - Hypocalcaemia [Unknown]
  - Pharyngitis [Unknown]
  - Pyrexia [Unknown]
  - Hypokalaemia [Unknown]
  - Rash [Unknown]
  - Pain [Unknown]
  - Hypomagnesaemia [Unknown]

NARRATIVE: CASE EVENT DATE: 20010123
